FAERS Safety Report 4727426-0 (Version None)
Quarter: 2005Q3

REPORT INFORMATION
  Report Type: 
  Country: None (occurrence: None)
  Receive Date: 20050727
  Receipt Date: 20050727
  Transmission Date: 20060218
  Serious: Yes (Hospitalization)
  Sender: FDA-Public Use
  Company Number: None

PATIENT
  Age: 67 Year
  Sex: Female
  Weight: 94.7 kg

DRUGS (19)
  1. HYDROMORPHONE 20 MG/ML [Suspect]
     Indication: PAIN
     Dosage: 20 MG/ML , 4 MG DAILY IT [LONG TERM]
     Route: 037
  2. BACLOFEN [Suspect]
     Indication: PAIN
     Dosage: 28 MCG DAILY IT [LONG TERM]
     Route: 037
  3. AMBIEN [Concomitant]
  4. PROPOXYPHENE HCL [Concomitant]
  5. SINGULAIR [Concomitant]
  6. PROMETHAZINE [Concomitant]
  7. LAMICTAL [Concomitant]
  8. ZANAFLEX [Concomitant]
  9. PAXIL [Concomitant]
  10. NEURONTIN [Concomitant]
  11. ZETIA [Concomitant]
  12. NEXIUM [Concomitant]
  13. MAXZIDE [Concomitant]
  14. DICYCLOMINE [Concomitant]
  15. PATANOL [Concomitant]
  16. NASONEX [Concomitant]
  17. DIAZEPAM [Concomitant]
  18. CLARINEX [Concomitant]
  19. COUMADIN [Concomitant]

REACTIONS (7)
  - HYPOTENSION [None]
  - HYPOVENTILATION [None]
  - HYPOXIA [None]
  - LETHARGY [None]
  - RESPIRATORY DEPRESSION [None]
  - SEDATION [None]
  - SOMNOLENCE [None]
